FAERS Safety Report 10960857 (Version 1)
Quarter: 2015Q1

REPORT INFORMATION
  Report Type: Spontaneous
  Country: US (occurrence: None)
  Receive Date: 20150326
  Receipt Date: 20150326
  Transmission Date: 20150721
  Serious: No
  Sender: FDA-Public Use
  Company Number: None

PATIENT
  Age: 51 Year
  Sex: Female
  Weight: 182.8 kg

DRUGS (3)
  1. ATENOLOL. [Concomitant]
     Active Substance: ATENOLOL
  2. LEVOTHYROXINE [Concomitant]
     Active Substance: LEVOTHYROXINE
  3. VALSARTAN 320 MG MYLAN [Suspect]
     Active Substance: VALSARTAN
     Indication: ESSENTIAL HYPERTENSION
     Route: 048
     Dates: start: 20150220, end: 20150313

REACTIONS (3)
  - Refusal of treatment by patient [None]
  - Feeling abnormal [None]
  - Joint swelling [None]

NARRATIVE: CASE EVENT DATE: 20150313
